FAERS Safety Report 4386582-7 (Version None)
Quarter: 2004Q2

REPORT INFORMATION
  Report Type: 
  Country: None (occurrence: None)
  Receive Date: 20040623
  Receipt Date: 20040615
  Transmission Date: 20050107
  Serious: No
  Sender: FDA-Public Use
  Company Number: 04P-163-0263947-00

PATIENT
  Age: 19 Year
  Sex: Male

DRUGS (1)
  1. DILAUDID-HP [Suspect]
     Indication: PAIN
     Dosage: PCA, INJECTION
     Dates: start: 20021211

REACTIONS (3)
  - BRAIN DAMAGE [None]
  - PRURITUS [None]
  - RESPIRATORY ARREST [None]
